FAERS Safety Report 19605082 (Version 2)
Quarter: 2021Q3

REPORT INFORMATION
  Report Type: Spontaneous
  Country: US (occurrence: US)
  Receive Date: 20210723
  Receipt Date: 20210817
  Transmission Date: 20211014
  Serious: Yes (Other)
  Sender: FDA-Public Use
  Company Number: US-AMERICAN REGENT INC-2021001900

PATIENT
  Sex: Female

DRUGS (4)
  1. INJECTAFER [Suspect]
     Active Substance: FERRIC CARBOXYMALTOSE
     Dosage: UNK, SECOND INJECTAFER INFUSION
     Route: 042
  2. INJECTAFER [Suspect]
     Active Substance: FERRIC CARBOXYMALTOSE
     Dosage: UNK, THIRD INJECTAFER INFUSION
     Route: 042
  3. INJECTAFER [Suspect]
     Active Substance: FERRIC CARBOXYMALTOSE
     Indication: PRODUCT USED FOR UNKNOWN INDICATION
     Dosage: UNK, FIRST INJECTAFER INFUSION
     Route: 042
  4. INJECTAFER [Suspect]
     Active Substance: FERRIC CARBOXYMALTOSE
     Dosage: UNK, FOURTH INJECTAFER INFUSION
     Route: 042
     Dates: start: 20210716, end: 20210716

REACTIONS (8)
  - Sneezing [Unknown]
  - Musculoskeletal chest pain [Not Recovered/Not Resolved]
  - Chest pain [Unknown]
  - Hyperhidrosis [Unknown]
  - Retching [Unknown]
  - Feeling hot [Unknown]
  - Nausea [Unknown]
  - Product quality issue [Unknown]

NARRATIVE: CASE EVENT DATE: 20210716
